FAERS Safety Report 10229009 (Version 3)
Quarter: 2014Q3

REPORT INFORMATION
  Report Type: Spontaneous
  Country: US (occurrence: US)
  Receive Date: 20140610
  Receipt Date: 20140929
  Transmission Date: 20150326
  Serious: No
  Sender: FDA-Public Use
  Company Number: US-GILEAD-2014-0104722

PATIENT
  Age: 78 Year
  Sex: Female

DRUGS (3)
  1. LETAIRIS [Suspect]
     Active Substance: AMBRISENTAN
     Indication: CARDIOVASCULAR DISORDER
     Dosage: 5 MG, QD
     Route: 065
     Dates: start: 20120728
  2. LETAIRIS [Suspect]
     Active Substance: AMBRISENTAN
     Indication: PULMONARY HYPERTENSION
  3. RIOCIGUAT [Concomitant]
     Active Substance: RIOCIGUAT

REACTIONS (1)
  - Dyspnoea [Unknown]
